FAERS Safety Report 19613594 (Version 4)
Quarter: 2021Q4

REPORT INFORMATION
  Report Type: Report from Study
  Country: CA (occurrence: CA)
  Receive Date: 20210727
  Receipt Date: 20211112
  Transmission Date: 20220303
  Serious: Yes (Hospitalization)
  Sender: FDA-Public Use
  Company Number: CA-ABBVIE-21K-028-4005353-00

PATIENT
  Age: 45 Year
  Sex: Male
  Weight: 75 kg

DRUGS (6)
  1. SKYRIZI [Suspect]
     Active Substance: RISANKIZUMAB-RZAA
     Indication: Psoriasis
     Route: 058
     Dates: start: 20200309, end: 20200406
  2. SKYRIZI [Suspect]
     Active Substance: RISANKIZUMAB-RZAA
     Route: 058
     Dates: start: 20200406
  3. ENSTILAR [Concomitant]
     Active Substance: BETAMETHASONE DIPROPIONATE\CALCIPOTRIENE HYDRATE
     Indication: Psoriasis
     Dosage: 1 APPLICATION
     Route: 061
     Dates: start: 20160806
  4. PROTOPIC [Concomitant]
     Active Substance: TACROLIMUS
     Indication: Psoriasis
     Dosage: 1 APPLICATION
     Route: 061
     Dates: start: 20131101
  5. BETAMETHASONE\CALCIPOTRIENE [Concomitant]
     Active Substance: BETAMETHASONE\CALCIPOTRIENE
     Indication: Psoriasis
     Dosage: 1 APPLICATION
     Route: 061
     Dates: start: 20140201
  6. CEFTRIAXONE [Concomitant]
     Active Substance: CEFTRIAXONE
     Indication: Terminal ileitis
     Route: 042
     Dates: start: 20210708, end: 20210712

REACTIONS (3)
  - Diverticulitis intestinal perforated [Recovered/Resolved]
  - Terminal ileitis [Recovered/Resolved]
  - Abdominal pain [Not Recovered/Not Resolved]

NARRATIVE: CASE EVENT DATE: 20210708
